FAERS Safety Report 9787723 (Version 1)
Quarter: 2013Q4

REPORT INFORMATION
  Report Type: Spontaneous
  Country: FR (occurrence: FR)
  Receive Date: 20131230
  Receipt Date: 20131230
  Transmission Date: 20140711
  Serious: Yes (Hospitalization)
  Sender: FDA-Public Use
  Company Number: FR-JNJFOC-20131214829

PATIENT
  Age: 75 Year
  Sex: Female

DRUGS (5)
  1. XARELTO [Suspect]
     Indication: THROMBOSIS PROPHYLAXIS
     Route: 048
     Dates: start: 20131109, end: 20131109
  2. LOVENOX [Suspect]
     Indication: THROMBOSIS PROPHYLAXIS
     Route: 058
     Dates: start: 20131108, end: 20131108
  3. STILNOX [Concomitant]
     Route: 048
  4. ACTONEL [Concomitant]
     Route: 048
  5. STRESAM [Concomitant]
     Route: 048
     Dates: start: 201309

REACTIONS (1)
  - Deep vein thrombosis [Unknown]
